FAERS Safety Report 9421250 (Version 1)
Quarter: 2013Q3

REPORT INFORMATION
  Report Type: Spontaneous
  Country: FR (occurrence: FR)
  Receive Date: 20130725
  Receipt Date: 20130725
  Transmission Date: 20140515
  Serious: Yes (Other)
  Sender: FDA-Public Use
  Company Number: FR-BAXTER-2013BAX027895

PATIENT
  Age: 60 Year
  Sex: Male

DRUGS (10)
  1. ENDOXAN 2000 MG, LYOPHILISAT POUR SOLUTION INJECTABLE [Suspect]
     Indication: GRANULOMATOSIS WITH POLYANGIITIS
     Route: 042
  2. ENDOXAN 2000 MG, LYOPHILISAT POUR SOLUTION INJECTABLE [Suspect]
     Indication: PULMONARY ALVEOLAR HAEMORRHAGE
     Route: 048
  3. ENDOXAN 2000 MG, LYOPHILISAT POUR SOLUTION INJECTABLE [Suspect]
     Indication: PROTEIN TOTAL INCREASED
  4. ENDOXAN 2000 MG, LYOPHILISAT POUR SOLUTION INJECTABLE [Suspect]
     Indication: GLOMERULONEPHRITIS
  5. GAMMAGARD 50 MG/ML, POUDRE ET SOLVANT POUR SOLUTION POUR PERFUSION [Suspect]
     Indication: GRANULOMATOSIS WITH POLYANGIITIS
  6. AZATHIOPRINE [Suspect]
     Indication: GRANULOMATOSIS WITH POLYANGIITIS
     Route: 065
  7. AZATHIOPRINE [Suspect]
     Indication: PULMONARY ALVEOLAR HAEMORRHAGE
  8. AZATHIOPRINE [Suspect]
     Indication: PROTEIN TOTAL INCREASED
  9. AZATHIOPRINE [Suspect]
     Indication: GLOMERULONEPHRITIS
  10. PREDNISONE [Concomitant]
     Indication: GRANULOMATOSIS WITH POLYANGIITIS

REACTIONS (1)
  - Progressive multifocal leukoencephalopathy [Recovered/Resolved with Sequelae]
